FAERS Safety Report 8999710 (Version 1)
Quarter: 2013Q1

REPORT INFORMATION
  Report Type: Spontaneous
  Country: JP (occurrence: JP)
  Receive Date: 20130102
  Receipt Date: 20130102
  Transmission Date: 20140127
  Serious: Yes (Hospitalization)
  Sender: FDA-Public Use
  Company Number: JP-GLAXOSMITHKLINE-B0853050A

PATIENT
  Age: 49 Year
  Sex: Male

DRUGS (1)
  1. RELENZA [Suspect]
     Indication: INFLUENZA
     Dosage: 2IUAX TWICE PER DAY
     Route: 055
     Dates: start: 20121213

REACTIONS (3)
  - Anaphylactic reaction [Recovering/Resolving]
  - Altered state of consciousness [Recovering/Resolving]
  - Blood pressure decreased [Recovering/Resolving]
